FAERS Safety Report 18282831 (Version 2)
Quarter: 2020Q4

REPORT INFORMATION
  Report Type: Spontaneous
  Country: JP (occurrence: JP)
  Receive Date: 20200918
  Receipt Date: 20201118
  Transmission Date: 20210113
  Serious: Yes (Hospitalization, Other)
  Sender: FDA-Public Use
  Company Number: JP-BRISTOL-MYERS SQUIBB COMPANY-BMS-2020-075968

PATIENT
  Age: 70 Year
  Sex: Male
  Weight: 67.1 kg

DRUGS (1)
  1. YERVOY [Suspect]
     Active Substance: IPILIMUMAB
     Indication: MALIGNANT MELANOMA
     Dosage: UNK
     Route: 065

REACTIONS (4)
  - Adrenal insufficiency [Unknown]
  - Hypothyroidism [Unknown]
  - Hypophysitis [Unknown]
  - Hypogonadism [Recovered/Resolved]
